FAERS Safety Report 8083924-6 (Version None)
Quarter: 2012Q1

REPORT INFORMATION
  Report Type: 
  Country: None (occurrence: None)
  Receive Date: 20120128
  Receipt Date: 20110113
  Transmission Date: 20120608
  Serious: No
  Sender: FDA-Public Use
  Company Number: US-ABBOTT-11P-163-0697316-00

PATIENT
  Age: 26 Year
  Sex: Female

DRUGS (3)
  1. BIRTH CONTROL PILLS [Concomitant]
     Indication: PRODUCT USED FOR UNKNOWN INDICATION
     Route: 048
  2. ALLEGRA [Concomitant]
     Indication: HYPERSENSITIVITY
     Route: 048
  3. HUMIRA [Suspect]
     Indication: CROHN'S DISEASE
     Dates: start: 20070901

REACTIONS (1)
  - HOT FLUSH [None]
